FAERS Safety Report 16652862 (Version 6)
Quarter: 2019Q3

REPORT INFORMATION
  Report Type: Spontaneous
  Country: CZ (occurrence: CZ)
  Receive Date: 20190731
  Receipt Date: 20190827
  Transmission Date: 20191004
  Serious: No
  Sender: FDA-Public Use
  Company Number: CZ-PFIZER INC-2019321175

PATIENT
  Age: 54 Year
  Sex: Female

DRUGS (10)
  1. MOXONIDIN [Suspect]
     Active Substance: MOXONIDINE
     Indication: HYPERTENSION
     Dosage: 0.4 MG, 1X/DAY (1 TABLET EVENING)
     Route: 048
  2. MICARDIS [Suspect]
     Active Substance: TELMISARTAN
     Indication: HYPERTENSION
     Dosage: 80 MG, 1X/DAY
     Route: 048
     Dates: start: 2014
  3. METFORMIN [Concomitant]
     Active Substance: METFORMIN HYDROCHLORIDE
     Indication: DIABETES MELLITUS
  4. TWYNSTA [Suspect]
     Active Substance: AMLODIPINE BESYLATE\TELMISARTAN
     Indication: HYPERTENSION
     Dosage: 10 MG, 1X/DAY
     Route: 048
  5. AMLODIPINE BESILATE [Suspect]
     Active Substance: AMLODIPINE BESYLATE
     Indication: HYPERTENSION
     Dosage: 10 MG, 1X/DAY
     Route: 048
  6. BETAXOLOL. [Suspect]
     Active Substance: BETAXOLOL
     Indication: HYPERTENSION
     Dosage: 20 MG, 1X/DAY (1/4 TABLET)
     Route: 048
  7. URAPIDIL [Suspect]
     Active Substance: URAPIDIL
     Indication: HYPERTENSION
     Dosage: 30 MG, 2X/DAY  (1 TABLET MORNING, 1 TABLET EVENING)
     Route: 048
  8. METFORMIN [Concomitant]
     Active Substance: METFORMIN HYDROCHLORIDE
     Indication: HYPERCHOLESTEROLAEMIA
     Dosage: UNK
     Route: 065
  9. MICARDIS PLUS [Suspect]
     Active Substance: HYDROCHLOROTHIAZIDE\TELMISARTAN
     Indication: HYPERTENSION
     Dosage: 1 DF, DAILY (80/12.5 MG, 1 TABLET MORNING)
     Route: 048
  10. TWYNSTA [Suspect]
     Active Substance: AMLODIPINE BESYLATE\TELMISARTAN
     Dosage: 80 MG, 1X/DAY
     Route: 048

REACTIONS (1)
  - Treatment noncompliance [Unknown]
